FAERS Safety Report 5151866-1 (Version None)
Quarter: 2006Q4

REPORT INFORMATION
  Report Type: 
  Country: None (occurrence: None)
  Receive Date: 20061109
  Receipt Date: 20061017
  Transmission Date: 20070319
  Serious: Yes (Other)
  Sender: FDA-Public Use
  Company Number: 2006134570

PATIENT
  Sex: Male

DRUGS (1)
  1. SILDENAFIL CITRATE [Suspect]
     Indication: PULMONARY HYPERTENSION
     Dosage: 75 MG (75 MG, 1 IN 1 D),ORAL
     Route: 048

REACTIONS (3)
  - BREAST MASS [None]
  - CEREBRAL INFARCTION [None]
  - VISION BLURRED [None]
